FAERS Safety Report 4978030-0 (Version None)
Quarter: 2006Q2

REPORT INFORMATION
  Report Type: 
  Country: None (occurrence: None)
  Receive Date: 20060420
  Receipt Date: 20050824
  Transmission Date: 20061013
  Serious: Yes (Hospitalization)
  Sender: FDA-Public Use
  Company Number: US-MERCK-0508USA04087

PATIENT
  Age: 51 Year
  Sex: Male
  Weight: 99 kg

DRUGS (5)
  1. VIOXX [Suspect]
     Indication: ARTHRALGIA
     Route: 048
     Dates: start: 20000101, end: 20040101
  2. ASPIRIN [Concomitant]
     Route: 065
  3. TOPROL-XL [Concomitant]
     Route: 065
  4. EFFEXOR [Concomitant]
     Route: 065
  5. NITROGLYCERIN [Concomitant]
     Route: 060

REACTIONS (3)
  - ALANINE AMINOTRANSFERASE INCREASED [None]
  - ASPARTATE AMINOTRANSFERASE INCREASED [None]
  - MYOCARDIAL INFARCTION [None]
